FAERS Safety Report 4916424-X (Version None)
Quarter: 2006Q1

REPORT INFORMATION
  Report Type: 
  Country: None (occurrence: None)
  Receive Date: 20060214
  Receipt Date: 20060210
  Transmission Date: 20060701
  Serious: Yes (Other)
  Sender: FDA-Public Use
  Company Number: VISP-NO-0602S-0074

PATIENT
  Age: 71 Year
  Sex: Female
  Weight: 62 kg

DRUGS (1)
  1. VISIPAQUE [Suspect]
     Dosage: SINGLE DOSE, I.T.
     Route: 037
     Dates: start: 20051114, end: 20051114

REACTIONS (3)
  - ACCIDENT [None]
  - POST PROCEDURAL COMPLICATION [None]
  - SYNCOPE [None]
